FAERS Safety Report 14778326 (Version 1)
Quarter: 2018Q2

REPORT INFORMATION
  Report Type: Spontaneous
  Country: US (occurrence: US)
  Receive Date: 20180419
  Receipt Date: 20180419
  Transmission Date: 20180711
  Serious: No
  Sender: FDA-Public Use
  Company Number: US-PERRIGO-17US024056

PATIENT
  Age: 64 Year
  Sex: Female
  Weight: 63.49 kg

DRUGS (2)
  1. CLOBETASOL PROPIONATE. [Suspect]
     Active Substance: CLOBETASOL PROPIONATE
     Indication: ALOPECIA
     Dosage: SMALL AMOUNT, BID
     Route: 061
     Dates: start: 2015, end: 20170522
  2. CLOBETASOL PROPIONATE. [Suspect]
     Active Substance: CLOBETASOL PROPIONATE
     Dosage: SMALL AMOUNT, BID
     Route: 061
     Dates: start: 20170523

REACTIONS (3)
  - Off label use [Not Recovered/Not Resolved]
  - Incorrect drug administration duration [Recovered/Resolved]
  - Wrong technique in product usage process [Recovered/Resolved]

NARRATIVE: CASE EVENT DATE: 2015
